FAERS Safety Report 5312539-5 (Version None)
Quarter: 2007Q2

REPORT INFORMATION
  Report Type: 
  Country: None (occurrence: None)
  Receive Date: 20070430
  Receipt Date: 20070110
  Transmission Date: 20071010
  Serious: Yes (Other)
  Sender: FDA-Public Use
  Company Number: 2007UW00523

PATIENT
  Age: 64 Year
  Sex: Female
  Weight: 63.5 kg

DRUGS (7)
  1. NEXIUM [Suspect]
     Indication: GASTROOESOPHAGEAL REFLUX DISEASE
     Route: 048
     Dates: start: 20061101
  2. INSULIN [Concomitant]
  3. ASPIRIN [Concomitant]
  4. ASCORBIC ACID [Concomitant]
  5. FLAXSEED [Concomitant]
  6. VITAMIN AND MINERAL PRENATAL SUPPLEMENT W/ FOLIC ACID CAP [Concomitant]
  7. LIPITOR [Concomitant]

REACTIONS (1)
  - GASTROINTESTINAL HAEMORRHAGE [None]
